FAERS Safety Report 17980310 (Version 4)
Quarter: 2020Q3

REPORT INFORMATION
  Report Type: Spontaneous
  Country: JP (occurrence: JP)
  Receive Date: 20200703
  Receipt Date: 20200813
  Transmission Date: 20201103
  Serious: Yes (Hospitalization, Other)
  Sender: FDA-Public Use
  Company Number: JP-AMGEN-JPNSP2020105556

PATIENT
  Age: 84 Year
  Sex: Female

DRUGS (2)
  1. ZOLEDRONIC ACID [Suspect]
     Active Substance: ZOLEDRONIC ACID
     Indication: METASTASES TO BONE
     Dosage: 4 MILLIGRAM
     Route: 042
     Dates: start: 20121126, end: 20140428
  2. RANMARK [Suspect]
     Active Substance: DENOSUMAB
     Indication: BREAST CANCER RECURRENT
     Dosage: 120 MILLIGRAM
     Route: 058
     Dates: start: 20140428, end: 20200515

REACTIONS (1)
  - Atypical femur fracture [Recovering/Resolving]

NARRATIVE: CASE EVENT DATE: 20200526
